FAERS Safety Report 9008934 (Version 1)
Quarter: 2013Q1

REPORT INFORMATION
  Report Type: Spontaneous
  Country: CA (occurrence: CA)
  Receive Date: 20130111
  Receipt Date: 20130111
  Transmission Date: 20140127
  Serious: Yes (Hospitalization, Other)
  Sender: FDA-Public Use
  Company Number: CA-AMGEN-CANSP2011041823

PATIENT
  Age: 64 Year
  Sex: Female

DRUGS (6)
  1. ENBREL [Suspect]
     Indication: RHEUMATOID ARTHRITIS
     Dosage: 50 MG, QWK
     Dates: start: 20091010
  2. FOSAMAX [Concomitant]
     Dosage: UNK
  3. ARAVA [Concomitant]
     Dosage: UNK
  4. CANDESARTAN [Concomitant]
     Dosage: UNK
  5. CRESTOR [Concomitant]
     Dosage: UNK
  6. METFORMIN [Concomitant]
     Dosage: UNK

REACTIONS (2)
  - Impaired healing [Recovering/Resolving]
  - Atypical femur fracture [Recovering/Resolving]
